FAERS Safety Report 23544174 (Version 1)
Quarter: 2024Q1

REPORT INFORMATION
  Report Type: Spontaneous
  Country: IE (occurrence: IE)
  Receive Date: 20240220
  Receipt Date: 20240220
  Transmission Date: 20240410
  Serious: Yes (Hospitalization)
  Sender: FDA-Public Use
  Company Number: IE-MYLANLABS-2024M1014990

PATIENT
  Sex: Male

DRUGS (4)
  1. CLOZARIL [Suspect]
     Active Substance: CLOZAPINE
     Indication: Schizophrenia
     Dosage: UNK
     Route: 048
     Dates: start: 20181219, end: 20240211
  2. CLOZARIL [Suspect]
     Active Substance: CLOZAPINE
     Dosage: UNK, HS (EVENING)
     Route: 065
     Dates: start: 20240213
  3. CLOZARIL [Suspect]
     Active Substance: CLOZAPINE
     Dosage: UNK UNK, QD (MORNING)
     Route: 065
     Dates: start: 20240214
  4. CLOZARIL [Suspect]
     Active Substance: CLOZAPINE
     Dosage: UNK, HS (EVENING)
     Route: 065
     Dates: start: 20240215

REACTIONS (3)
  - Renal impairment [Recovering/Resolving]
  - Blood pressure decreased [Unknown]
  - Treatment noncompliance [Unknown]
